FAERS Safety Report 7313403-2 (Version None)
Quarter: 2011Q1

REPORT INFORMATION
  Report Type: 
  Country: None (occurrence: None)
  Receive Date: 20110225
  Receipt Date: 20110217
  Transmission Date: 20110831
  Serious: Yes (Life-Threatening, Hospitalization, Other)
  Sender: FDA-Public Use
  Company Number: US-PFIZER INC-2011034277

PATIENT
  Sex: Female
  Weight: 72.562 kg

DRUGS (1)
  1. PRISTIQ [Suspect]
     Dosage: UNK

REACTIONS (3)
  - WEIGHT DECREASED [None]
  - SUICIDAL IDEATION [None]
  - PANIC ATTACK [None]
